FAERS Safety Report 10249440 (Version 1)
Quarter: 2014Q2

REPORT INFORMATION
  Report Type: Spontaneous
  Country: US (occurrence: US)
  Receive Date: 20140620
  Receipt Date: 20140620
  Transmission Date: 20141212
  Serious: Yes (Hospitalization)
  Sender: FDA-Public Use
  Company Number: PHHY2014US072469

PATIENT
  Age: 14 Year
  Sex: Male

DRUGS (10)
  1. MYCOPHENOLATE MOFETIL [Suspect]
     Indication: GRANULOMATOSIS WITH POLYANGIITIS
     Dosage: 750 MG (TOTAL DAILY DOSE OF 650 MG/M2/DAY)
     Route: 048
  2. MYCOPHENOLATE MOFETIL [Suspect]
     Dosage: 1 G, BID (3000 MG/M2/DAY)
     Route: 048
  3. MYCOPHENOLATE MOFETIL [Suspect]
     Dosage: 500 MG, QID
     Route: 048
  4. LOSARTAN [Concomitant]
  5. FERROUS SULFATE [Concomitant]
  6. DARBEPOETIN ALFA [Concomitant]
  7. OMEPRAZOLE [Concomitant]
  8. FAMOTIDINE [Concomitant]
  9. MULTI-VIT [Concomitant]
  10. TRIMETHOPRIM SULFAMETHOXAZOLE [Concomitant]
     Indication: PNEUMOCYSTIS JIROVECII PNEUMONIA

REACTIONS (13)
  - Metabolic acidosis [Recovering/Resolving]
  - Hyponatraemia [Recovering/Resolving]
  - Dehydration [Recovering/Resolving]
  - Cachexia [Recovering/Resolving]
  - Failure to thrive [Recovering/Resolving]
  - Enterocolitis [Recovering/Resolving]
  - Diarrhoea [Recovering/Resolving]
  - Vomiting [Recovering/Resolving]
  - Weight gain poor [Recovering/Resolving]
  - Weight decreased [Recovering/Resolving]
  - Decreased appetite [Recovering/Resolving]
  - Fatigue [Recovering/Resolving]
  - Early satiety [Recovering/Resolving]
